FAERS Safety Report 4350730-5 (Version None)
Quarter: 2004Q2

REPORT INFORMATION
  Report Type: 
  Country: None (occurrence: None)
  Receive Date: 20040428
  Receipt Date: 20040325
  Transmission Date: 20050107
  Serious: Yes (Hospitalization)
  Sender: FDA-Public Use
  Company Number: 2004-FF-00212FF

PATIENT
  Age: 24 Hour
  Sex: Male

DRUGS (7)
  1. VIRAMUNE [Suspect]
     Indication: HIV INFECTION
     Dosage: NR(NR, 1 DOSE)
     Route: 048
  2. VIRAMUNE [Suspect]
     Indication: HIV INFECTION
     Dosage: NR(NR, 1 DOSE)
     Route: 015
  3. VIRAMUNE [Suspect]
     Indication: HIV INFECTION
     Dosage: NR (NR, 1 DOSE)
     Route: 015
  4. ROVAMYCINE (SPIRAMYCIN) (NR) [Concomitant]
  5. RULID (NR) [Concomitant]
  6. AUGMENTIN (NR) [Concomitant]
  7. INDOCID (NR) [Concomitant]

REACTIONS (8)
  - ABDOMINAL DISTENSION [None]
  - ANAEMIA MACROCYTIC [None]
  - BLOOD CREATINE PHOSPHOKINASE INCREASED [None]
  - CAESAREAN SECTION [None]
  - CANDIDIASIS [None]
  - GAIT DISTURBANCE [None]
  - MATERNAL DRUGS AFFECTING FOETUS [None]
  - NEUTROPENIA [None]
